FAERS Safety Report 7929249-8 (Version None)
Quarter: 2011Q4

REPORT INFORMATION
  Report Type: 
  Country: None (occurrence: None)
  Receive Date: 20111121
  Receipt Date: 20111114
  Transmission Date: 20120403
  Serious: Yes (Hospitalization)
  Sender: FDA-Public Use
  Company Number: US-BIOGENIDEC-2008BI001854

PATIENT
  Age: 51 Year
  Sex: Female

DRUGS (2)
  1. AVONEX [Suspect]
     Indication: MULTIPLE SCLEROSIS
     Route: 030
     Dates: start: 20050621
  2. AVONEX [Suspect]
     Route: 030
     Dates: start: 20111101

REACTIONS (3)
  - OVARIAN CANCER [None]
  - CLOSTRIDIAL INFECTION [None]
  - STAPHYLOCOCCAL INFECTION [None]
